FAERS Safety Report 7998702-3 (Version None)
Quarter: 2011Q4

REPORT INFORMATION
  Report Type: 
  Country: None (occurrence: None)
  Receive Date: 20111221
  Receipt Date: 20111219
  Transmission Date: 20120403
  Serious: Yes (Other)
  Sender: FDA-Public Use
  Company Number: CA-PFIZER INC-2011304558

PATIENT
  Age: 69 Year
  Sex: Female
  Weight: 102 kg

DRUGS (8)
  1. TENORMIN [Concomitant]
     Dosage: 100 MG, 1X/DAY IN AM
     Dates: start: 20080101
  2. PREVACID [Concomitant]
     Dosage: 30 MG, 1X/DAY IN AM
     Dates: start: 20101201
  3. ACETAMINOPHEN [Concomitant]
     Dosage: 650 MG, 4X/DAY
     Route: 048
     Dates: start: 20080101
  4. SEROQUEL [Concomitant]
     Dosage: 25 MG AT BEDTIME
     Dates: start: 20080101
  5. CELEBREX [Suspect]
     Indication: OSTEOARTHRITIS
     Dosage: 100 MG, 1X/DAY
     Route: 048
     Dates: start: 20110515, end: 20110523
  6. REMERON [Concomitant]
     Dosage: 15 MG AT BEDTIME
     Dates: start: 20080401
  7. LACRI-LUBE [Concomitant]
     Dosage: IN BOTH EYES AT BEDTIME
     Dates: start: 20091209, end: 20110701
  8. CORTATE [Concomitant]
     Indication: ERYTHEMA
     Dosage: AS NEEDED
     Dates: start: 20090701, end: 20110601

REACTIONS (3)
  - PEMPHIGOID [None]
  - HEAT OEDEMA [None]
  - OEDEMA PERIPHERAL [None]
